FAERS Safety Report 22872458 (Version 3)
Quarter: 2023Q4

REPORT INFORMATION
  Report Type: Spontaneous
  Country: JP (occurrence: JP)
  Receive Date: 20230828
  Receipt Date: 20231005
  Transmission Date: 20240109
  Serious: Yes (Death, Other)
  Sender: FDA-Public Use
  Company Number: JP-MSD-M2023-33988

PATIENT
  Age: 60 Year
  Sex: Male

DRUGS (3)
  1. KEYTRUDA [Suspect]
     Active Substance: PEMBROLIZUMAB
     Indication: Oesophageal squamous cell carcinoma stage IV
     Dosage: 200 MILLIGRAM, Q3W
     Route: 041
     Dates: start: 20230309, end: 2023
  2. CISPLATIN [Suspect]
     Active Substance: CISPLATIN
     Indication: Oesophageal squamous cell carcinoma stage IV
     Dosage: UNK, CYCLICAL (4-WEEK CYCLE)
     Route: 065
     Dates: start: 202303, end: 2023
  3. FLUOROURACIL [Suspect]
     Active Substance: FLUOROURACIL
     Indication: Oesophageal squamous cell carcinoma stage IV
     Dosage: UNK, CYCLICAL (4-WEEK CYCLE)
     Route: 065
     Dates: start: 202303, end: 2023

REACTIONS (2)
  - Malignant neoplasm progression [Unknown]
  - Paraneoplastic pleural effusion [Fatal]

NARRATIVE: CASE EVENT DATE: 20230101
